FAERS Safety Report 7502830-6 (Version None)
Quarter: 2011Q2

REPORT INFORMATION
  Report Type: 
  Country: None (occurrence: None)
  Receive Date: 20110525
  Receipt Date: 20100816
  Transmission Date: 20111010
  Serious: No
  Sender: FDA-Public Use
  Company Number: US-NOVEN-ALL1-2010-04325

PATIENT

DRUGS (2)
  1. DAYTRANA [Suspect]
     Dosage: UNK MG TOTALING 5MG UP TO 20 MG, 1X/DAY:QD
     Route: 062
     Dates: start: 20080101, end: 20090101
  2. UNSPECIFIED INHALER [Concomitant]
     Dosage: UNK, UNKNOWN
     Route: 055
     Dates: start: 20040101

REACTIONS (3)
  - APPLICATION SITE ERYTHEMA [None]
  - DRUG INEFFECTIVE [None]
  - APPLICATION SITE IRRITATION [None]
